FAERS Safety Report 17682062 (Version 1)
Quarter: 2020Q2

REPORT INFORMATION
  Report Type: Report from Study
  Country: None (occurrence: US)
  Receive Date: 20200418
  Receipt Date: 20200418
  Transmission Date: 20200714
  Serious: Yes (Other)
  Sender: FDA-Public Use
  Company Number: US-ABBVIE-19K-163-3158979-00

PATIENT
  Sex: Female

DRUGS (2)
  1. IMBRUVICA [Suspect]
     Active Substance: IBRUTINIB
     Indication: CHRONIC LYMPHOCYTIC LEUKAEMIA
     Dosage: 420 MG, QD
     Route: 048
     Dates: start: 20171003
  2. IMBRUVICA [Suspect]
     Active Substance: IBRUTINIB
     Indication: CHRONIC LYMPHOCYTIC LEUKAEMIA
     Dosage: 420 MG, QD
     Route: 048
     Dates: start: 20180412

REACTIONS (8)
  - Fatigue [Not Recovered/Not Resolved]
  - Hip arthroplasty [Unknown]
  - Onychoclasis [Unknown]
  - Alopecia [Unknown]
  - Thirst [Unknown]
  - Nail disorder [Unknown]
  - Headache [Unknown]
  - Arthralgia [Unknown]
